FAERS Safety Report 15017972 (Version 1)
Quarter: 2018Q2

REPORT INFORMATION
  Report Type: Report from Study
  Country: AR (occurrence: AR)
  Receive Date: 20180615
  Receipt Date: 20180615
  Transmission Date: 20180711
  Serious: Yes (Other)
  Sender: FDA-Public Use
  Company Number: PHHY2018AR021451

PATIENT
  Sex: Female

DRUGS (3)
  1. VALSARTAN + HCT [Suspect]
     Active Substance: HYDROCHLOROTHIAZIDE\VALSARTAN
     Indication: PRODUCT USED FOR UNKNOWN INDICATION
     Dosage: UNK
     Route: 065
  2. VALSARTAN. [Suspect]
     Active Substance: VALSARTAN
     Indication: HYPERTENSION
     Dosage: 1 DF (320), QD
     Route: 065
  3. VALSARTAN, AMLODIPINE [Suspect]
     Active Substance: AMLODIPINE\VALSARTAN
     Indication: HYPERTENSION
     Route: 065

REACTIONS (9)
  - Blood pressure increased [Unknown]
  - Tachycardia [Unknown]
  - Fatigue [Unknown]
  - Headache [Unknown]
  - Cerebrovascular accident [Unknown]
  - Swelling [Unknown]
  - Drug intolerance [Unknown]
  - Pain in extremity [Unknown]
  - Peripheral swelling [Unknown]
